FAERS Safety Report 6518902-9 (Version None)
Quarter: 2009Q4

REPORT INFORMATION
  Report Type: 
  Country: None (occurrence: None)
  Receive Date: 20091228
  Receipt Date: 20091217
  Transmission Date: 20100525
  Serious: Yes (Other)
  Sender: FDA-Public Use
  Company Number: US-ASTRAZENECA-2009SE32518

PATIENT
  Age: 74 Year
  Sex: Female
  Weight: 67.1 kg

DRUGS (5)
  1. PULMICORT RESPULES [Suspect]
     Indication: CHRONIC OBSTRUCTIVE PULMONARY DISEASE
     Route: 055
  2. ENALAPRIL [Concomitant]
     Indication: HYPERTENSION
  3. ALBUTEROL SULFATE AUTOHALER [Concomitant]
     Indication: CHRONIC OBSTRUCTIVE PULMONARY DISEASE
  4. NOREPHINDRONE [Concomitant]
  5. LEVOXYL [Concomitant]
     Indication: THYROID DISORDER

REACTIONS (1)
  - LOSS OF CONSCIOUSNESS [None]
